FAERS Safety Report 7054594-0 (Version None)
Quarter: 2010Q4

REPORT INFORMATION
  Report Type: 
  Country: None (occurrence: None)
  Receive Date: 20101020
  Receipt Date: 20101018
  Transmission Date: 20110411
  Serious: Yes (Other)
  Sender: FDA-Public Use
  Company Number: RU-BAYER-201042593GPV

PATIENT
  Age: 6 Month
  Sex: Male
  Weight: 14 kg

DRUGS (1)
  1. KOGENATE FS [Suspect]
     Indication: FACTOR VIII DEFICIENCY
     Route: 042
     Dates: start: 20100118

REACTIONS (1)
  - HAEMATOMA [None]
